FAERS Safety Report 7892497-X (Version None)
Quarter: 2011Q4

REPORT INFORMATION
  Report Type: 
  Country: None (occurrence: None)
  Receive Date: 20111102
  Receipt Date: 20111024
  Transmission Date: 20120403
  Serious: No
  Sender: FDA-Public Use
  Company Number: 2011SP050416

PATIENT
  Age: 35 Year
  Sex: Female

DRUGS (7)
  1. WELLBUTRIN [Concomitant]
  2. XANAX [Concomitant]
  3. AMBIEN [Concomitant]
  4. XANAX [Concomitant]
  5. SAPHRIS [Suspect]
     Indication: BIPOLAR DISORDER
     Dosage: 5 MG;QD;SL
     Route: 060
     Dates: start: 20111001, end: 20111001
  6. WELLBUTRIN [Concomitant]
  7. AMBIEN [Concomitant]

REACTIONS (1)
  - RASH GENERALISED [None]
